FAERS Safety Report 7095170-3 (Version None)
Quarter: 2010Q4

REPORT INFORMATION
  Report Type: 
  Country: None (occurrence: None)
  Receive Date: 20101109
  Receipt Date: 20101109
  Transmission Date: 20110411
  Serious: Yes (Other)
  Sender: FDA-Public Use
  Company Number: None

PATIENT
  Age: 68 Year
  Sex: Male
  Weight: 87 kg

DRUGS (2)
  1. DOXORUBICIN HCL [Suspect]
     Indication: LYMPHOMA
     Dosage: 103 MG OTHER IV
     Route: 042
     Dates: start: 20091211, end: 20100510
  2. CYCLOPHOSPHAMIDE [Suspect]
     Indication: LYMPHOMA
     Dosage: 1550 MG OTHER IV
     Route: 042
     Dates: start: 20091211, end: 20100510

REACTIONS (5)
  - ABDOMINAL DISTENSION [None]
  - CARDIOMEGALY [None]
  - CARDIOMYOPATHY [None]
  - ORTHOPNOEA [None]
  - SINUS TACHYCARDIA [None]
